FAERS Safety Report 16542891 (Version 2)
Quarter: 2019Q4

REPORT INFORMATION
  Report Type: Spontaneous
  Country: US (occurrence: US)
  Receive Date: 20190709
  Receipt Date: 20191007
  Transmission Date: 20200122
  Serious: Yes (Other)
  Sender: FDA-Public Use
  Company Number: US-ASTRAZENECA-2018SF47956

PATIENT
  Age: 72 Year
  Sex: Female
  Weight: 69.9 kg

DRUGS (68)
  1. MUPIROCIN. [Concomitant]
     Active Substance: MUPIROCIN
     Indication: INFECTION
     Dates: start: 20040714, end: 20170808
  2. CIPROFLOXACIN. [Concomitant]
     Active Substance: CIPROFLOXACIN
     Indication: INFECTION
     Dates: start: 20041018, end: 20170920
  3. PHENAZOPYRIDINE. [Concomitant]
     Active Substance: PHENAZOPYRIDINE
     Indication: URINARY TRACT INFECTION
     Dates: start: 20041021, end: 20170711
  4. NYSTATIN. [Concomitant]
     Active Substance: NYSTATIN
     Indication: INFECTION
     Dates: start: 20140516, end: 20180130
  5. HYDROCODONE [Concomitant]
     Active Substance: HYDROCODONE
     Indication: PAIN
     Dates: start: 20150513, end: 20171031
  6. LISINOPRIL. [Concomitant]
     Active Substance: LISINOPRIL
     Indication: BLOOD PRESSURE ABNORMAL
     Dates: start: 20150924, end: 20180130
  7. PROMETHAZINE [Concomitant]
     Active Substance: PROMETHAZINE HYDROCHLORIDE
     Indication: MULTIPLE ALLERGIES
     Dates: start: 20050608, end: 20171017
  8. PREMARIN [Concomitant]
     Active Substance: ESTROGENS, CONJUGATED
     Indication: BLOOD OESTROGEN DECREASED
     Dates: start: 20040602, end: 20170920
  9. ALBUTEROL. [Concomitant]
     Active Substance: ALBUTEROL
  10. PYRIDIATE [Concomitant]
     Indication: URINARY TRACT INFECTION
     Dates: start: 20040910, end: 20050314
  11. POTASSIUM CHLORIDE. [Concomitant]
     Active Substance: POTASSIUM CHLORIDE
     Indication: HYPOKALAEMIA
     Dates: start: 20041021, end: 20160201
  12. METHOCARBAMOL. [Concomitant]
     Active Substance: METHOCARBAMOL
     Indication: MYALGIA
     Dates: start: 20050421, end: 20101215
  13. ALLEGRA-D [Concomitant]
     Active Substance: FEXOFENADINE\PSEUDOEPHEDRINE
     Indication: MULTIPLE ALLERGIES
     Dates: start: 20061122, end: 20070322
  14. MECLIZINE [Concomitant]
     Active Substance: MECLIZINE HYDROCHLORIDE
     Indication: GASTROENTERITIS VIRAL
     Dates: start: 20090311
  15. DOXYCYCLINE. [Concomitant]
     Active Substance: DOXYCYCLINE
     Indication: INFECTION
     Dates: start: 20110623
  16. BETAMETHASONE. [Concomitant]
     Active Substance: BETAMETHASONE
     Indication: COUGH
     Dates: start: 20130403
  17. ONGLYZA [Concomitant]
     Active Substance: SAXAGLIPTIN HYDROCHLORIDE
     Indication: DIABETES MELLITUS
     Dates: start: 20141022, end: 20150527
  18. ONDANSETRON [Concomitant]
     Active Substance: ONDANSETRON
     Indication: NAUSEA
     Dates: start: 20150403
  19. GUAIFENEX [Concomitant]
     Active Substance: GUAIFENESIN\PHENYLEPHRINE\PHENYLPROPANOLAMINE
     Indication: MULTIPLE ALLERGIES
     Dates: start: 20060925, end: 20070621
  20. ROLAIDS [Concomitant]
     Active Substance: CALCIUM CARBONATE\MAGNESIUM HYDROXIDE
     Dates: start: 2015
  21. NEXIUM [Suspect]
     Active Substance: ESOMEPRAZOLE MAGNESIUM
     Indication: BURNING SENSATION
     Route: 048
  22. PANTOPRAZOLE [Suspect]
     Active Substance: PANTOPRAZOLE
     Indication: BURNING SENSATION
     Route: 065
  23. LEVAQUIN [Concomitant]
     Active Substance: LEVOFLOXACIN
     Indication: INFECTION
     Dates: start: 20041006, end: 20051123
  24. CEFPROZIL. [Concomitant]
     Active Substance: CEFPROZIL
     Indication: INFECTION
     Dates: start: 20070122, end: 20170208
  25. PRAMIPEXOLE. [Concomitant]
     Active Substance: PRAMIPEXOLE
     Indication: RESTLESS LEGS SYNDROME
     Dates: start: 20140922, end: 20141022
  26. VENTOLIN HFA [Concomitant]
     Active Substance: ALBUTEROL SULFATE
     Indication: COUGH
     Dates: start: 20151104, end: 20160201
  27. ALPRAZOLAM. [Concomitant]
     Active Substance: ALPRAZOLAM
     Indication: ANXIETY
     Dates: start: 20040602, end: 20180130
  28. ISOSORBIDE. [Concomitant]
     Active Substance: ISOSORBIDE
     Indication: ANGINA PECTORIS
     Dates: start: 20040602
  29. DILTIAZEM. [Concomitant]
     Active Substance: DILTIAZEM
     Indication: ANGINA PECTORIS
     Dates: start: 20040614, end: 20180130
  30. TRAZODONE [Concomitant]
     Active Substance: TRAZODONE HYDROCHLORIDE
     Indication: MENTAL DISORDER
     Dates: start: 20060825, end: 20140619
  31. CARTIA [Concomitant]
     Indication: BLOOD PRESSURE ABNORMAL
     Dates: start: 20160428, end: 20161103
  32. CHERTUSSIN [Concomitant]
     Indication: COUGH
     Dates: start: 20160509
  33. CLOPIDOGREL [Concomitant]
     Active Substance: CLOPIDOGREL BISULFATE
     Indication: CARDIAC DISORDER
     Dates: start: 20170109, end: 20180130
  34. METHYLPREDNISOLONE. [Concomitant]
     Active Substance: METHYLPREDNISOLONE
     Indication: MULTIPLE ALLERGIES
     Dates: start: 20110502, end: 20170117
  35. MUCINEX ER [Concomitant]
     Indication: MULTIPLE ALLERGIES
     Dates: start: 20070122, end: 20170615
  36. DIPHENHYDRAMINE. [Concomitant]
     Active Substance: DIPHENHYDRAMINE
     Indication: MULTIPLE ALLERGIES
     Dates: start: 20061024, end: 20131108
  37. RANITIDINE. [Concomitant]
     Active Substance: RANITIDINE
     Dates: start: 2014, end: 2016
  38. TUMS [Concomitant]
     Active Substance: CALCIUM CARBONATE
  39. NEXIUM [Suspect]
     Active Substance: ESOMEPRAZOLE MAGNESIUM
     Indication: BURNING SENSATION
     Dosage: TWICE DAILY
     Route: 048
     Dates: start: 2000, end: 2015
  40. NEXIUM [Suspect]
     Active Substance: ESOMEPRAZOLE MAGNESIUM
     Indication: BURNING SENSATION
     Dosage: GENERIC
     Route: 065
  41. FUROSEMIDE. [Concomitant]
     Active Substance: FUROSEMIDE
     Indication: FLUID RETENTION
     Dates: start: 20041021, end: 20110422
  42. AMOXICILLIN. [Concomitant]
     Active Substance: AMOXICILLIN
     Indication: INFECTION
     Dates: start: 20060202, end: 20170412
  43. NAPROXEN. [Concomitant]
     Active Substance: NAPROXEN
     Indication: PAIN
     Dates: start: 20091214, end: 20141118
  44. FLUCONAZOLE. [Concomitant]
     Active Substance: FLUCONAZOLE
     Indication: INFECTION
     Dates: start: 20130228, end: 20150608
  45. TUSSIN DM [Concomitant]
     Active Substance: DEXTROMETHORPHAN HYDROBROMIDE\GUAIFENESIN
     Indication: COUGH
     Dates: start: 20141215
  46. NESINA [Concomitant]
     Active Substance: ALOGLIPTIN BENZOATE
     Indication: DIABETES MELLITUS
     Dates: start: 20150427, end: 20151110
  47. AMLODIPINE [Concomitant]
     Active Substance: AMLODIPINE BESYLATE
     Indication: ANGINA PECTORIS
     Dates: start: 20150911, end: 20161108
  48. MONTELUKAST [Concomitant]
     Active Substance: MONTELUKAST SODIUM
     Indication: MULTIPLE ALLERGIES
     Dates: start: 20120824, end: 20180130
  49. CYCLOBENZAPRINE. [Concomitant]
     Active Substance: CYCLOBENZAPRINE
  50. DILTIAZEM. [Concomitant]
     Active Substance: DILTIAZEM
     Indication: BLOOD PRESSURE ABNORMAL
     Dates: start: 20040614, end: 20180130
  51. CEPHALEXIN. [Concomitant]
     Active Substance: CEPHALEXIN
     Indication: INFECTION
     Dates: start: 20060303, end: 20170615
  52. CYCLOBENZAPRINE. [Concomitant]
     Active Substance: CYCLOBENZAPRINE
     Indication: MYALGIA
     Dates: start: 20110119, end: 20180130
  53. PREDNISOLONE. [Concomitant]
     Active Substance: PREDNISOLONE
     Indication: COUGH
     Dates: start: 20100421, end: 20110623
  54. CEFDINIR. [Concomitant]
     Active Substance: CEFDINIR
     Indication: INFECTION
     Dates: start: 20170208
  55. POLYETHYLENE GLYCOL [Concomitant]
     Active Substance: POLYETHYLENE GLYCOLS
     Indication: CONSTIPATION
     Dates: start: 20170615, end: 20180130
  56. GLIPIZIDE. [Concomitant]
     Active Substance: GLIPIZIDE
     Indication: DIABETES MELLITUS
     Dates: start: 20151207
  57. PENICILLIN [Concomitant]
     Active Substance: PENICILLIN
     Indication: INFECTION
     Dates: start: 20040623, end: 20170515
  58. BUMETANIDE. [Concomitant]
     Active Substance: BUMETANIDE
     Indication: BLOOD PRESSURE ABNORMAL
     Dates: start: 20150713, end: 20170817
  59. SIMVASTATIN. [Concomitant]
     Active Substance: SIMVASTATIN
     Indication: HYPERCHOLESTEROLAEMIA
     Dates: start: 20150810
  60. TRAMADOL. [Concomitant]
     Active Substance: TRAMADOL
     Indication: PAIN
     Dates: start: 20151130
  61. VEETIDS [Concomitant]
     Active Substance: PENICILLIN V POTASSIUM
     Indication: INFECTION
     Dates: start: 20040820
  62. NITROFURANTOIN. [Concomitant]
     Active Substance: NITROFURANTOIN
     Indication: URINARY TRACT INFECTION
     Dates: start: 20041026, end: 20170808
  63. INDOMETHACIN. [Concomitant]
     Active Substance: INDOMETHACIN
     Indication: PAIN
     Dates: start: 20080502
  64. METFORMIN [Concomitant]
     Active Substance: METFORMIN HYDROCHLORIDE
     Indication: DIABETES MELLITUS
     Dates: start: 20140130, end: 20151013
  65. METRONIDAZOLE. [Concomitant]
     Active Substance: METRONIDAZOLE
     Indication: INFECTION
     Dates: start: 20150608, end: 20150713
  66. ATORVASTATIN [Concomitant]
     Active Substance: ATORVASTATIN
     Indication: BLOOD CHOLESTEROL INCREASED
     Dates: start: 20150911, end: 20180130
  67. LORATADINE. [Concomitant]
     Active Substance: LORATADINE
     Indication: MULTIPLE ALLERGIES
     Dates: start: 20080401, end: 20110623
  68. FLUTICASONE. [Concomitant]
     Active Substance: FLUTICASONE
     Indication: MULTIPLE ALLERGIES
     Dates: start: 20071005

REACTIONS (4)
  - Rebound acid hypersecretion [Unknown]
  - Renal failure [Not Recovered/Not Resolved]
  - Acute kidney injury [Unknown]
  - Chronic kidney disease [Unknown]

NARRATIVE: CASE EVENT DATE: 2015
